FAERS Safety Report 15706509 (Version 2)
Quarter: 2019Q1

REPORT INFORMATION
  Report Type: Report from Study
  Country: US (occurrence: US)
  Receive Date: 20181210
  Receipt Date: 20190201
  Transmission Date: 20190417
  Serious: Yes (Other)
  Sender: FDA-Public Use
  Company Number: US-BAYER-2018-223193

PATIENT
  Sex: Male

DRUGS (2)
  1. XOFIGO [Suspect]
     Active Substance: RADIUM RA-223 DICHLORIDE
     Indication: BONE CANCER
  2. XOFIGO [Suspect]
     Active Substance: RADIUM RA-223 DICHLORIDE
     Indication: PROSTATE CANCER

REACTIONS (7)
  - Haemoglobin decreased [Unknown]
  - Blood glucose increased [None]
  - Prostatic specific antigen increased [None]
  - Blood pressure diastolic decreased [None]
  - White blood cell count decreased [Unknown]
  - Alanine aminotransferase increased [None]
  - Aspartate aminotransferase increased [None]
